FAERS Safety Report 9013494 (Version 1)
Quarter: 2013Q1

REPORT INFORMATION
  Report Type: Spontaneous
  Country: US (occurrence: None)
  Receive Date: 20130107
  Receipt Date: 20130107
  Transmission Date: 20140127
  Serious: Yes (Hospitalization)
  Sender: FDA-Public Use
  Company Number: None

PATIENT
  Age: 76 Year
  Sex: Male
  Weight: 68.1 kg

DRUGS (1)
  1. NAPROXEN [Suspect]
     Dosage: 220 MG BID PO
     Route: 048
     Dates: start: 20120207, end: 20121001

REACTIONS (3)
  - Bronchitis [None]
  - Gastrointestinal haemorrhage [None]
  - Haemorrhage [None]
